FAERS Safety Report 9026976 (Version 1)
Quarter: 2013Q1

REPORT INFORMATION
  Report Type: Spontaneous
  Country: US (occurrence: US)
  Receive Date: 20130123
  Receipt Date: 20130123
  Transmission Date: 20140127
  Serious: Yes (Death, Hospitalization, Disabling, Other)
  Sender: FDA-Public Use
  Company Number: US-ELI_LILLY_AND_COMPANY-US201301003777

PATIENT
  Sex: Male

DRUGS (2)
  1. HUMALOG LISPRO [Suspect]
  2. LANTUS [Concomitant]

REACTIONS (5)
  - Myocardial infarction [Fatal]
  - Leg amputation [Unknown]
  - Finger amputation [Unknown]
  - Blindness unilateral [Unknown]
  - Renal failure [Unknown]
